FAERS Safety Report 9385154 (Version 3)
Quarter: 2013Q3

REPORT INFORMATION
  Report Type: Report from Study
  Country: JP (occurrence: JP)
  Receive Date: 20130705
  Receipt Date: 20130808
  Transmission Date: 20140515
  Serious: Yes (Other)
  Sender: FDA-Public Use
  Company Number: JP-PFIZER INC-2013197073

PATIENT
  Age: 59 Year
  Sex: Male
  Weight: 73.7 kg

DRUGS (7)
  1. SELARA [Suspect]
     Indication: HYPERTENSION
     Dosage: 50 MG, DAILY
     Route: 048
     Dates: start: 20110609, end: 20110704
  2. ZYLORIC [Suspect]
     Indication: HYPERURICAEMIA
     Dosage: 2.5 MG, DAILY
     Route: 048
     Dates: start: 20100906
  3. AVAPRO [Suspect]
     Indication: HYPERTENSION
     Dosage: 100 MG, DAILY
     Route: 048
     Dates: start: 20100906
  4. SUNRYTHM [Suspect]
     Dosage: 50 MG, DAILY
     Route: 048
     Dates: start: 20100906
  5. BAYASPIRIN [Concomitant]
     Indication: THROMBOSIS PROPHYLAXIS
     Dosage: 100 MG, DAILY
     Route: 048
     Dates: start: 20100906
  6. AMLODIN [Concomitant]
     Indication: HYPERTENSION
     Dosage: 5 MG, DAILY
     Route: 048
     Dates: start: 20100906
  7. AMLODIPINE [Concomitant]
     Indication: HYPERTENSION
     Dosage: 2.5 MG, DAILY
     Route: 048
     Dates: start: 20100906

REACTIONS (2)
  - Atrial fibrillation [Recovered/Resolved]
  - Blood creatinine increased [Recovering/Resolving]
